FAERS Safety Report 15111284 (Version 1)
Quarter: 2018Q3

REPORT INFORMATION
  Report Type: Spontaneous
  Country: ES (occurrence: ES)
  Receive Date: 20180705
  Receipt Date: 20180705
  Transmission Date: 20181010
  Serious: Yes (Hospitalization, Other)
  Sender: FDA-Public Use
  Company Number: ES-PURDUE-CAN-2018-0008791

PATIENT
  Age: 18 Year
  Sex: Female

DRUGS (2)
  1. PALIPERIDONE. [Suspect]
     Active Substance: PALIPERIDONE
     Indication: PRODUCT USED FOR UNKNOWN INDICATION
     Dosage: UNK
     Route: 065
  2. NON?PMN METHYLPHENIDATE HYDROCHLORIDE [Suspect]
     Active Substance: METHYLPHENIDATE HYDROCHLORIDE
     Indication: PRODUCT USED FOR UNKNOWN INDICATION
     Dosage: UNK
     Route: 065

REACTIONS (6)
  - Cerebral artery occlusion [Recovering/Resolving]
  - Arterial disorder [Recovering/Resolving]
  - Carotid artery stenosis [Recovering/Resolving]
  - Vasculitis [Recovering/Resolving]
  - Ischaemic stroke [Recovering/Resolving]
  - Cerebral artery stenosis [Recovering/Resolving]
